FAERS Safety Report 9581992 (Version 2)
Quarter: 2013Q4

REPORT INFORMATION
  Report Type: Spontaneous
  Country: DE (occurrence: DE)
  Receive Date: 20131002
  Receipt Date: 20131223
  Transmission Date: 20140711
  Serious: Yes (Hospitalization)
  Sender: FDA-Public Use
  Company Number: DE-ABBVIE-13P-062-1153675-00

PATIENT
  Age: 77 Year
  Sex: Male
  Weight: 87 kg

DRUGS (6)
  1. TRENANTONE [Suspect]
     Indication: PROSTATE CANCER
     Dates: start: 20130206, end: 20130206
  2. TRENANTONE [Suspect]
     Dates: start: 20130531
  3. METOPROLOL [Concomitant]
     Indication: HYPERTENSION
     Dates: start: 20110902
  4. METFORMIN [Concomitant]
     Indication: DIABETES MELLITUS
     Dates: start: 20110902
  5. ACETYLSALICYLIC ACID [Concomitant]
     Indication: PRODUCT USED FOR UNKNOWN INDICATION
     Dates: start: 20110902
  6. XARELTO [Concomitant]
     Indication: PRODUCT USED FOR UNKNOWN INDICATION
     Dates: start: 20130610

REACTIONS (6)
  - Atrial fibrillation [Recovered/Resolved]
  - Paresis [Recovered/Resolved]
  - Disturbance in attention [Recovering/Resolving]
  - Memory impairment [Recovering/Resolving]
  - Cerebrovascular accident [Recovered/Resolved]
  - Syncope [Recovered/Resolved]
